FAERS Safety Report 22904204 (Version 3)
Quarter: 2025Q3

REPORT INFORMATION
  Report Type: Spontaneous
  Country: JP (occurrence: JP)
  Receive Date: 20230905
  Receipt Date: 20250912
  Transmission Date: 20251021
  Serious: Yes (Death, Other)
  Sender: ROCHE
  Company Number: JP-CHUGAI-2023031474AA

PATIENT
  Age: 79 Year
  Sex: Female

DRUGS (1)
  1. GAZYVA [Suspect]
     Active Substance: OBINUTUZUMAB
     Indication: Follicular lymphoma
     Route: 042

REACTIONS (6)
  - Marasmus [Fatal]
  - Femoral neck fracture [Unknown]
  - Road traffic accident [Unknown]
  - Pneumonia aspiration [Unknown]
  - Disease progression [Fatal]
  - Drug ineffective [Unknown]
